FAERS Safety Report 6749451-0 (Version None)
Quarter: 2010Q2

REPORT INFORMATION
  Report Type: 
  Country: None (occurrence: None)
  Receive Date: 20100601
  Receipt Date: 20100517
  Transmission Date: 20101027
  Serious: Yes (Other)
  Sender: FDA-Public Use
  Company Number: GR-PFIZER INC-2010061409

PATIENT
  Age: 27 Year
  Sex: Female

DRUGS (6)
  1. HYDROCORTISONE SODIUM SUCCINATE [Suspect]
     Indication: HORMONE REPLACEMENT THERAPY
  2. NIFEDIPINE [Concomitant]
     Indication: HYPERTENSION
  3. METHYLDOPA [Concomitant]
     Indication: HYPERTENSION
     Route: 048
  4. HYDRALAZINE [Concomitant]
     Indication: HYPERTENSION
     Route: 042
  5. DEXAMETHASONE [Concomitant]
     Indication: DEXAMETHASONE SUPPRESSION TEST
     Dosage: 1 MG, SINGLE
  6. ACTH [Concomitant]
     Indication: ACTH STIMULATION TEST
     Dosage: 0.25 MG, SINGLE

REACTIONS (2)
  - ADRENAL CYST [None]
  - CUSHING'S SYNDROME [None]
